FAERS Safety Report 4878724-1 (Version None)
Quarter: 2005Q4

REPORT INFORMATION
  Report Type: 
  Country: None (occurrence: None)
  Receive Date: 20051209
  Receipt Date: 20050331
  Transmission Date: 20060501
  Serious: Yes (Other)
  Sender: FDA-Public Use
  Company Number: USA-2004-0017862

PATIENT
  Age: 19 Year
  Sex: Female

DRUGS (3)
  1. OXYCONTIN [Suspect]
  2. KLONOPIN [Suspect]
  3. HEROIN (DIAMORPHINE) [Suspect]

REACTIONS (2)
  - MULTIPLE DRUG OVERDOSE [None]
  - POLYSUBSTANCE ABUSE [None]
